FAERS Safety Report 7756950-1 (Version None)
Quarter: 2011Q3

REPORT INFORMATION
  Report Type: 
  Country: None (occurrence: None)
  Receive Date: 20110916
  Receipt Date: 20110906
  Transmission Date: 20111222
  Serious: Yes (Death, Hospitalization, Other)
  Sender: FDA-Public Use
  Company Number: AR-ABBOTT-11P-007-0848103-00

PATIENT
  Sex: Female

DRUGS (5)
  1. TENOFOVIR DISOPROXIL FUMARATE [Concomitant]
     Indication: HIV INFECTION
     Dates: start: 20110218, end: 20110810
  2. LAMIVUDINE + ZIDOVUDINE [Concomitant]
     Indication: HIV INFECTION
     Dosage: 600 MG / 300 MG
     Dates: start: 20070329, end: 20110810
  3. COTRIM [Concomitant]
     Indication: PROPHYLAXIS
  4. COTRIM [Concomitant]
     Indication: PNEUMOCYSTIS JIROVECI PNEUMONIA
     Dosage: 800 MG / 160 MG
     Dates: start: 20070322, end: 20110810
  5. KALETRA [Suspect]
     Indication: HIV INFECTION
     Dosage: 800 MG / 200 MG
     Route: 048
     Dates: start: 20110218, end: 20110810

REACTIONS (3)
  - ACUTE HEPATIC FAILURE [None]
  - HEPATITIS [None]
  - JAUNDICE [None]
